FAERS Safety Report 19701574 (Version 1)
Quarter: 2021Q3

REPORT INFORMATION
  Report Type: Spontaneous
  Country: CA (occurrence: CA)
  Receive Date: 20210814
  Receipt Date: 20210814
  Transmission Date: 20211014
  Serious: Yes (Hospitalization, Other)
  Sender: FDA-Public Use
  Company Number: NVSC2021CA178208

PATIENT
  Age: 50 Year
  Sex: Female

DRUGS (31)
  1. MONTELUKAST [Suspect]
     Active Substance: MONTELUKAST SODIUM
     Indication: COMPLEX REGIONAL PAIN SYNDROME
     Route: 065
  2. CLONIDINE. [Suspect]
     Active Substance: CLONIDINE
     Indication: COMPLEX REGIONAL PAIN SYNDROME
     Route: 065
  3. IBUDILAST [Suspect]
     Active Substance: IBUDILAST
     Indication: COMPLEX REGIONAL PAIN SYNDROME
     Route: 065
  4. DILTIAZEM HYDROCHLORIDE. [Suspect]
     Active Substance: DILTIAZEM HYDROCHLORIDE
     Indication: COMPLEX REGIONAL PAIN SYNDROME
     Route: 065
  5. HYDROXYCHLOROQUINE SULFATE. [Suspect]
     Active Substance: HYDROXYCHLOROQUINE SULFATE
     Indication: COMPLEX REGIONAL PAIN SYNDROME
     Route: 065
  6. PALMIDROL [Suspect]
     Active Substance: PALMIDROL
     Indication: COMPLEX REGIONAL PAIN SYNDROME
     Route: 065
  7. SPIRONOLACTONE. [Suspect]
     Active Substance: SPIRONOLACTONE
     Indication: COMPLEX REGIONAL PAIN SYNDROME
     Route: 065
  8. KETAMINE [Suspect]
     Active Substance: KETAMINE
     Indication: COMPLEX REGIONAL PAIN SYNDROME
     Route: 048
  9. MEMANTINE HYDROCHLORIDE. [Suspect]
     Active Substance: MEMANTINE HYDROCHLORIDE
     Indication: COMPLEX REGIONAL PAIN SYNDROME
     Route: 065
  10. MYCOPHENOLATE MOFETIL. [Suspect]
     Active Substance: MYCOPHENOLATE MOFETIL
     Indication: COMPLEX REGIONAL PAIN SYNDROME
     Route: 065
  11. CAPSAICIN. [Suspect]
     Active Substance: CAPSAICIN
     Indication: COMPLEX REGIONAL PAIN SYNDROME
     Route: 065
  12. LITHIUM CARBONATE. [Suspect]
     Active Substance: LITHIUM CARBONATE
     Indication: COMPLEX REGIONAL PAIN SYNDROME
     Route: 065
  13. ACETYLCYSTEINE. [Suspect]
     Active Substance: ACETYLCYSTEINE
     Indication: COMPLEX REGIONAL PAIN SYNDROME
     Route: 065
  14. AMLODIPINE BESILATE [Suspect]
     Active Substance: AMLODIPINE BESYLATE
     Indication: COMPLEX REGIONAL PAIN SYNDROME
     Route: 065
  15. METOPROLOL TARTRATE. [Suspect]
     Active Substance: METOPROLOL TARTRATE
     Indication: COMPLEX REGIONAL PAIN SYNDROME
     Route: 065
  16. APREMILAST [Suspect]
     Active Substance: APREMILAST
     Indication: COMPLEX REGIONAL PAIN SYNDROME
     Route: 065
  17. ANAKINRA [Suspect]
     Active Substance: ANAKINRA
     Indication: COMPLEX REGIONAL PAIN SYNDROME
     Route: 065
  18. NALTREXONE HYDROCHLORIDE. [Suspect]
     Active Substance: NALTREXONE HYDROCHLORIDE
     Indication: COMPLEX REGIONAL PAIN SYNDROME
     Dosage: 4.5 MG, QD (1 EVERY 1 DAYS)
     Route: 065
  19. MAGNESIUM [Suspect]
     Active Substance: MAGNESIUM
     Indication: COMPLEX REGIONAL PAIN SYNDROME
     Route: 065
  20. PREGABALIN. [Suspect]
     Active Substance: PREGABALIN
     Indication: COMPLEX REGIONAL PAIN SYNDROME
     Dosage: CAPSULE
     Route: 065
  21. RIBOFLAVIN [Suspect]
     Active Substance: RIBOFLAVIN
     Indication: COMPLEX REGIONAL PAIN SYNDROME
     Route: 065
  22. VITAMIN C [Suspect]
     Active Substance: ASCORBIC ACID
     Indication: COMPLEX REGIONAL PAIN SYNDROME
     Dosage: 1000 MG
     Route: 065
  23. ERELZI [Suspect]
     Active Substance: ETANERCEPT-SZZS
     Indication: COMPLEX REGIONAL PAIN SYNDROME
     Route: 065
  24. RIBOFLAVIN [Suspect]
     Active Substance: RIBOFLAVIN
     Indication: MIGRAINE PROPHYLAXIS
  25. LIDOCAINE HYDROCHLORIDE. [Suspect]
     Active Substance: LIDOCAINE HYDROCHLORIDE
     Indication: COMPLEX REGIONAL PAIN SYNDROME
     Route: 061
  26. AMITRIPTYLINE HYDROCHLORIDE. [Suspect]
     Active Substance: AMITRIPTYLINE HYDROCHLORIDE
     Indication: COMPLEX REGIONAL PAIN SYNDROME
     Route: 065
  27. MEXILETINE [Suspect]
     Active Substance: MEXILETINE
     Indication: COMPLEX REGIONAL PAIN SYNDROME
     Route: 065
  28. PREDNISONE. [Suspect]
     Active Substance: PREDNISONE
     Indication: COMPLEX REGIONAL PAIN SYNDROME
     Dosage: 1 DF, QD (1 EVERY 1 DAYS)
     Route: 065
  29. BUMETANIDE. [Suspect]
     Active Substance: BUMETANIDE
     Indication: COMPLEX REGIONAL PAIN SYNDROME
     Route: 065
  30. CIMETIDINE [Suspect]
     Active Substance: CIMETIDINE
     Indication: COMPLEX REGIONAL PAIN SYNDROME
     Route: 065
  31. PENTOXYFYLLINE [Suspect]
     Active Substance: PENTOXIFYLLINE
     Indication: COMPLEX REGIONAL PAIN SYNDROME
     Route: 065

REACTIONS (19)
  - Hyperlipidaemia [Recovered/Resolved]
  - Skin disorder [Recovered/Resolved]
  - Weight increased [Recovered/Resolved]
  - Drug ineffective [Recovered/Resolved]
  - Body tinea [Recovered/Resolved]
  - Cellulitis [Recovered/Resolved]
  - Infection susceptibility increased [Recovered/Resolved]
  - Oral herpes [Recovered/Resolved]
  - Contusion [Recovered/Resolved]
  - Bone density decreased [Recovered/Resolved]
  - Poor quality sleep [Recovered/Resolved]
  - Glucose tolerance impaired [Recovered/Resolved]
  - Purpura [Recovered/Resolved]
  - Cataract [Recovered/Resolved]
  - Herpes zoster [Recovered/Resolved]
  - Hypertension [Recovered/Resolved]
  - Insomnia [Recovered/Resolved]
  - Inhibitory drug interaction [Recovered/Resolved]
  - Fatigue [Recovered/Resolved]
